FAERS Safety Report 15121607 (Version 1)
Quarter: 2018Q3

REPORT INFORMATION
  Report Type: Spontaneous
  Country: US (occurrence: US)
  Receive Date: 20180613
  Receipt Date: 20180613
  Transmission Date: 20181010
  Serious: Yes (Life-Threatening)
  Sender: FDA-Public Use
  Company Number: None

PATIENT
  Age: 49 Year
  Sex: Female
  Weight: 81 kg

DRUGS (2)
  1. SEPTOCAINE [Suspect]
     Active Substance: ARTICAINE HYDROCHLORIDE\EPINEPHRINE BITARTRATE
     Indication: DENTAL LOCAL ANAESTHESIA
     Dosage: ?          OTHER FREQUENCY:PROCEDURAL;?
     Route: 004
     Dates: start: 20180613, end: 20180613
  2. MEPIVACAINE [Suspect]
     Active Substance: MEPIVACAINE\MEPIVACAINE HYDROCHLORIDE
     Indication: DENTAL LOCAL ANAESTHESIA
     Dosage: ?          OTHER FREQUENCY:PROCEDURAL;?
     Route: 004

REACTIONS (3)
  - Intercepted drug administration error [None]
  - Product use complaint [None]
  - Product appearance confusion [None]

NARRATIVE: CASE EVENT DATE: 20180613
